FAERS Safety Report 9189642 (Version 2)
Quarter: 2013Q2

REPORT INFORMATION
  Report Type: Spontaneous
  Country: JP (occurrence: JP)
  Receive Date: 20130326
  Receipt Date: 20130404
  Transmission Date: 20140414
  Serious: Yes (Life-Threatening)
  Sender: FDA-Public Use
  Company Number: JP-MYLANLABS-2013S1006157

PATIENT
  Age: 78 Year
  Sex: Male
  Weight: 79 kg

DRUGS (13)
  1. SEVOFRANE [Suspect]
     Indication: GENERAL ANAESTHESIA
     Route: 055
     Dates: start: 20120403, end: 20120403
  2. REMIFENTANIL [Suspect]
     Indication: MAINTENANCE OF ANAESTHESIA
     Dosage: 0.2-0.4 MG/HR CONTINUOUS ADMINISTRATION
     Route: 042
     Dates: start: 20120403, end: 20120403
  3. FENTANYL [Suspect]
     Indication: ANALGESIC THERAPY
     Dosage: 0.025-0.1MG/DOSE (4 IN 1 D)
     Route: 042
     Dates: start: 20120403, end: 20120403
  4. FENTANYL [Suspect]
     Indication: ABDOMINAL PAIN
     Dosage: 0.025-0.1MG/DOSE (4 IN 1 D)
     Route: 042
     Dates: start: 20120403, end: 20120403
  5. FENTANYL [Suspect]
     Indication: ANALGESIC THERAPY
     Dosage: UG/KG/HR CONTINUOUS INFUSION
     Route: 042
     Dates: start: 20120403, end: 20120404
  6. FENTANYL [Suspect]
     Indication: ABDOMINAL PAIN
     Dosage: UG/KG/HR CONTINUOUS INFUSION
     Route: 042
     Dates: start: 20120403, end: 20120404
  7. ROCURONIUM [Concomitant]
     Indication: HYPOTONIA
     Route: 042
  8. ROCURONIUM [Concomitant]
     Indication: MAINTENANCE OF ANAESTHESIA
     Route: 042
  9. PROPOFOL [Concomitant]
     Indication: INDUCTION OF ANAESTHESIA
     Route: 042
     Dates: start: 20120403, end: 20120403
  10. MENATETRENONE [Concomitant]
     Indication: PROCOAGULANT THERAPY
     Route: 042
     Dates: start: 20120403, end: 20120403
  11. SUGAMMADEX SODIUM [Concomitant]
     Indication: ANAESTHESIA REVERSAL
     Route: 042
     Dates: start: 20120403, end: 20120403
  12. PHENYLEPHRINE [Concomitant]
     Indication: HYPOTENSION
     Dosage: 0.05-0.2MG/DOSE (11 IN 1 D)
     Route: 042
     Dates: start: 20120403, end: 20120403
  13. NORADRENALINE [Concomitant]
     Indication: HYPOTENSION
     Dosage: 0.03-0.05MCG/KG/MIN CONTINUOUS INFUSION
     Route: 042
     Dates: start: 20120403, end: 20120403

REACTIONS (3)
  - Respiratory arrest [Recovered/Resolved with Sequelae]
  - Bradycardia [Recovered/Resolved with Sequelae]
  - Hypoxic-ischaemic encephalopathy [Unknown]
